FAERS Safety Report 18489255 (Version 1)
Quarter: 2020Q4

REPORT INFORMATION
  Report Type: Spontaneous
  Country: CA (occurrence: CA)
  Receive Date: 20201111
  Receipt Date: 20201111
  Transmission Date: 20210114
  Serious: Yes (Other)
  Sender: FDA-Public Use
  Company Number: CA-JNJFOC-20201105656

PATIENT
  Age: 72 Year
  Sex: Male
  Weight: 65 kg

DRUGS (1)
  1. INFLIXIMAB, RECOMBINANT [Suspect]
     Active Substance: INFLIXIMAB
     Indication: ANKYLOSING SPONDYLITIS
     Route: 042

REACTIONS (7)
  - Weight increased [Unknown]
  - Product use issue [Unknown]
  - Back pain [Unknown]
  - Pain in extremity [Unknown]
  - Off label use [Unknown]
  - Arthralgia [Unknown]
  - Neck pain [Unknown]
